FAERS Safety Report 24214116 (Version 2)
Quarter: 2024Q3

REPORT INFORMATION
  Report Type: Spontaneous
  Country: US (occurrence: US)
  Receive Date: 20240815
  Receipt Date: 20240820
  Transmission Date: 20241017
  Serious: Yes (Death)
  Sender: VERTEX
  Company Number: US-VERTEX PHARMACEUTICALS-2024-013117

PATIENT
  Age: 66 Year
  Sex: Female

DRUGS (7)
  1. TRIKAFTA [Suspect]
     Active Substance: ELEXACAFTOR\IVACAFTOR\TEZACAFTOR
     Indication: Cystic fibrosis
     Dosage: 2 ORANGE TABS IN MORNING AND 1 BLUE TABLET IN THE EVENING
     Route: 048
     Dates: start: 20210727
  2. SERTRALINE HYDROCHLORIDE [Concomitant]
     Active Substance: SERTRALINE HYDROCHLORIDE
  3. SUBOXONE [Concomitant]
     Active Substance: BUPRENORPHINE HYDROCHLORIDE\NALOXONE HYDROCHLORIDE
  4. AZITHROMYCIN [Concomitant]
     Active Substance: AZITHROMYCIN
  5. INGREZZA [Concomitant]
     Active Substance: VALBENAZINE
  6. LEVOTHYROXINE SODIUM [Concomitant]
     Active Substance: LEVOTHYROXINE SODIUM
  7. ADDERALL [Concomitant]
     Active Substance: AMPHETAMINE ASPARTATE\AMPHETAMINE SULFATE\DEXTROAMPHETAMINE SACCHARATE\DEXTROAMPHETAMINE SULFATE

REACTIONS (1)
  - Death [Fatal]

NARRATIVE: CASE EVENT DATE: 20240803
